FAERS Safety Report 26038180 (Version 1)
Quarter: 2025Q4

REPORT INFORMATION
  Report Type: Spontaneous
  Country: GB (occurrence: GB)
  Receive Date: 20251113
  Receipt Date: 20251113
  Transmission Date: 20260118
  Serious: Yes (Other)
  Sender: TEVA
  Company Number: None

PATIENT
  Age: 80 Year
  Sex: Female
  Weight: 53 kg

DRUGS (2)
  1. ATORVASTATIN [Suspect]
     Active Substance: ATORVASTATIN
     Indication: Coronary artery bypass
     Dates: start: 20230820, end: 20251031
  2. BISOPROLOL [Concomitant]
     Active Substance: BISOPROLOL
     Indication: Coronary artery bypass
     Dates: start: 202406

REACTIONS (3)
  - Myalgia [Recovered/Resolved with Sequelae]
  - Muscle spasms [Recovered/Resolved with Sequelae]
  - Dry mouth [Recovered/Resolved]

NARRATIVE: CASE EVENT DATE: 20240429
